FAERS Safety Report 16951357 (Version 1)
Quarter: 2019Q4

REPORT INFORMATION
  Report Type: Spontaneous
  Country: US (occurrence: US)
  Receive Date: 20191022
  Receipt Date: 20191022
  Transmission Date: 20200122
  Serious: No
  Sender: FDA-Public Use
  Company Number: None

PATIENT
  Age: 29 Year
  Sex: Female
  Weight: 69.75 kg

DRUGS (5)
  1. B2 [Concomitant]
  2. AIMOVIG [Suspect]
     Active Substance: ERENUMAB-AOOE
     Indication: MIGRAINE
     Dosage: ?          QUANTITY:1 INJECTION(S);OTHER FREQUENCY:EVERY 28 DAYS;?
  3. TOPAMAX [Concomitant]
     Active Substance: TOPIRAMATE
  4. VIOELE [Concomitant]
  5. DAILY VITAMIN [Concomitant]
     Active Substance: VITAMINS

REACTIONS (3)
  - Alopecia [None]
  - Pruritus [None]
  - Eye pruritus [None]

NARRATIVE: CASE EVENT DATE: 20190715
